FAERS Safety Report 25817160 (Version 1)
Quarter: 2025Q3

REPORT INFORMATION
  Report Type: Report from Study
  Country: EU (occurrence: EU)
  Receive Date: 20250918
  Receipt Date: 20250918
  Transmission Date: 20251021
  Serious: Yes (Other)
  Sender: ROCHE
  Company Number: EU-ROCHE-10000315508

PATIENT
  Age: 65 Year
  Sex: Female
  Weight: 52 kg

DRUGS (3)
  1. TOCILIZUMAB [Suspect]
     Active Substance: TOCILIZUMAB
     Indication: Rheumatoid arthritis
     Route: 058
  2. MABTHERA [Suspect]
     Active Substance: RITUXIMAB
     Indication: Product used for unknown indication
     Route: 065
  3. METHOTREXATE [Suspect]
     Active Substance: METHOTREXATE
     Indication: Product used for unknown indication
     Route: 065

REACTIONS (12)
  - Nasopharyngitis [Unknown]
  - Lung disorder [Unknown]
  - Chronic obstructive pulmonary disease [Unknown]
  - Total lung capacity decreased [Unknown]
  - Arthralgia [Unknown]
  - Blood cholesterol abnormal [Unknown]
  - Influenza [Unknown]
  - Blood electrolytes decreased [Unknown]
  - Decreased immune responsiveness [Unknown]
  - Hepatitis B [Unknown]
  - Neutropenia [Recovering/Resolving]
  - Leukopenia [Unknown]
